FAERS Safety Report 5051640-0 (Version None)
Quarter: 2006Q3

REPORT INFORMATION
  Report Type: 
  Country: None (occurrence: None)
  Receive Date: 20060711
  Receipt Date: 20060626
  Transmission Date: 20061208
  Serious: Yes (Other)
  Sender: FDA-Public Use
  Company Number: 8017563

PATIENT
  Sex: Female
  Weight: 18.18 kg

DRUGS (3)
  1. KEPPRA [Suspect]
     Indication: PETIT MAL EPILEPSY
     Dosage: 1000 MG 2/D PO
     Route: 048
     Dates: start: 20060301, end: 20060625
  2. KEPPRA [Suspect]
     Indication: PETIT MAL EPILEPSY
     Dosage: 1000 MG ONCE PO
     Route: 048
     Dates: start: 20060626, end: 20060626
  3. RITALIN [Concomitant]

REACTIONS (5)
  - ABNORMAL BEHAVIOUR [None]
  - AGGRESSION [None]
  - DRUG DISPENSING ERROR [None]
  - FATIGUE [None]
  - INCORRECT DOSE ADMINISTERED [None]
